FAERS Safety Report 7715255-5 (Version None)
Quarter: 2011Q3

REPORT INFORMATION
  Report Type: 
  Country: None (occurrence: None)
  Receive Date: 20110829
  Receipt Date: 20110823
  Transmission Date: 20111222
  Serious: Yes (Hospitalization, Other)
  Sender: FDA-Public Use
  Company Number: FR-PFIZER INC-2011194629

PATIENT
  Age: 81 Year
  Sex: Female

DRUGS (8)
  1. FERROUS SULFATE TAB [Concomitant]
  2. SPECIAFOLDINE [Concomitant]
  3. ZOPICLONE [Suspect]
     Route: 048
  4. CELIPROLOL [Concomitant]
  5. CYMBALTA [Concomitant]
  6. RISPERDAL [Concomitant]
  7. INSULIN DETEMIR [Concomitant]
  8. XANAX [Suspect]
     Route: 048

REACTIONS (18)
  - OVERDOSE [None]
  - DEHYDRATION [None]
  - DYSPNOEA [None]
  - CARDIAC FAILURE [None]
  - LUNG DISORDER [None]
  - PO2 DECREASED [None]
  - ISCHAEMIC STROKE [None]
  - COMA [None]
  - CONVULSION [None]
  - ACUTE PRERENAL FAILURE [None]
  - CYTOLYTIC HEPATITIS [None]
  - CEREBROVASCULAR ACCIDENT [None]
  - ALTERED STATE OF CONSCIOUSNESS [None]
  - SYSTEMIC INFLAMMATORY RESPONSE SYNDROME [None]
  - OXYGEN SATURATION DECREASED [None]
  - BLOOD SODIUM DECREASED [None]
  - PARTIAL SEIZURES [None]
  - LEFT VENTRICULAR FAILURE [None]
